FAERS Safety Report 12320264 (Version 1)
Quarter: 2016Q2

REPORT INFORMATION
  Report Type: Spontaneous
  Country: GB (occurrence: GB)
  Receive Date: 20160429
  Receipt Date: 20160429
  Transmission Date: 20160815
  Serious: Yes (Death)
  Sender: FDA-Public Use
  Company Number: GB-MYLANLABS-2016M1017789

PATIENT

DRUGS (7)
  1. THIOTEPA. [Suspect]
     Active Substance: THIOTEPA
     Indication: GERM CELL CANCER
     Dosage: DAYS 1-4 AT 125 MG/M2/DAY
     Route: 050
  2. PACLITAXEL. [Concomitant]
     Active Substance: PACLITAXEL
     Indication: GERM CELL CANCER
     Dosage: 3-WEEKLY REGIMEN; 80 MG/M2 ADMINISTERED ON DAYS 1, 8 AND 15
     Route: 065
  3. FILGRASTIM [Concomitant]
     Active Substance: FILGRASTIM
     Indication: GERM CELL CANCER
     Dosage: 300 MCG/DAY ON ALTERNATE DAYS FROM DAY 2 TO DAY 14
     Route: 065
  4. CARBOPLATIN. [Suspect]
     Active Substance: CARBOPLATIN
     Indication: GERM CELL CANCER
     Dosage: AUC 7
     Route: 065
  5. OXALIPLATIN. [Concomitant]
     Active Substance: OXALIPLATIN
     Indication: GERM CELL CANCER
     Dosage: 3-WEEKLY REGIMEN; 100 MG/M2 ON DAY 1
     Route: 065
  6. IRINOTECAN [Concomitant]
     Active Substance: IRINOTECAN
     Indication: GERM CELL CANCER
     Dosage: 3-WEEKLY REGIMEN; 200 MG/M2 ON DAY 1
     Route: 065
  7. TOPOTECAN [Suspect]
     Active Substance: TOPOTECAN\TOPOTECAN HYDROCHLORIDE
     Indication: GERM CELL CANCER
     Dosage: 10 MG/M2 ON DAYS 1, 2 AND 3
     Route: 065

REACTIONS (2)
  - Fungal infection [Fatal]
  - Hepatic failure [Fatal]
